FAERS Safety Report 9494341 (Version 2)
Quarter: 2013Q3

REPORT INFORMATION
  Report Type: Report from Study
  Country: CA (occurrence: CA)
  Receive Date: 20130903
  Receipt Date: 20130906
  Transmission Date: 20140515
  Serious: Yes (Other)
  Sender: FDA-Public Use
  Company Number: CA-JNJFOC-20130816715

PATIENT
  Age: 22 Year
  Sex: Female
  Weight: 75.1 kg

DRUGS (3)
  1. REMICADE [Suspect]
     Indication: HIDRADENITIS
     Route: 042
     Dates: start: 20130207
  2. TRAMACET [Concomitant]
     Route: 065
  3. SPIRONOLACTONE [Concomitant]
     Route: 065

REACTIONS (2)
  - Vomiting [Recovered/Resolved]
  - Off label use [Unknown]
